FAERS Safety Report 9397188 (Version 10)
Quarter: 2015Q3

REPORT INFORMATION
  Report Type: Report from Study
  Country: CA (occurrence: CA)
  Receive Date: 20130712
  Receipt Date: 20150817
  Transmission Date: 20151125
  Serious: Yes (Hospitalization)
  Sender: FDA-Public Use
  Company Number: PHHY2013CA070488

PATIENT
  Age: 59 Year
  Sex: Male

DRUGS (5)
  1. SANDOSTATIN [Suspect]
     Active Substance: OCTREOTIDE ACETATE
     Indication: INSULINOMA
     Dosage: 100 UG, TID
     Route: 058
     Dates: start: 201306
  2. SANDOSTATIN [Suspect]
     Active Substance: OCTREOTIDE ACETATE
     Dosage: QD
     Route: 058
     Dates: start: 201502
  3. CORTISONE [Concomitant]
     Active Substance: CORTISONE\HYDROCORTISONE
     Indication: PRODUCT USED FOR UNKNOWN INDICATION
     Route: 065
  4. SANDOSTATIN LAR DEPOT [Suspect]
     Active Substance: OCTREOTIDE ACETATE
     Indication: INSULINOMA
     Dosage: 30 MG, QMO (EVERY FOUR WEEKS)
     Route: 030
     Dates: start: 20130628
  5. SANDOSTATIN LAR DEPOT [Suspect]
     Active Substance: OCTREOTIDE ACETATE
     Dosage: 40 MG, QMO (EVERY 4 WEEKS)
     Route: 030

REACTIONS (16)
  - Inflammatory bowel disease [Unknown]
  - Nausea [Unknown]
  - Asthenia [Unknown]
  - Swelling face [Unknown]
  - Ocular hyperaemia [Unknown]
  - Clostridium difficile infection [Unknown]
  - Vomiting [Unknown]
  - Blood glucose fluctuation [Unknown]
  - Blood pressure increased [Unknown]
  - Vein disorder [Unknown]
  - Diabetic coma [Unknown]
  - Coma [Recovered/Resolved]
  - Constipation [Unknown]
  - Pain [Unknown]
  - Hypoglycaemia [Unknown]
  - Heart rate increased [Unknown]

NARRATIVE: CASE EVENT DATE: 2015
